FAERS Safety Report 24310658 (Version 2)
Quarter: 2025Q3

REPORT INFORMATION
  Report Type: Report from Study
  Country: KR (occurrence: KR)
  Receive Date: 20240912
  Receipt Date: 20250903
  Transmission Date: 20251020
  Serious: Yes (Hospitalization, Other)
  Sender: TAKEDA
  Company Number: KR-TAKEDA-2024TUS090334

PATIENT
  Age: 41 Year
  Sex: Male
  Weight: 92 kg

DRUGS (20)
  1. VEDOLIZUMAB [Suspect]
     Active Substance: VEDOLIZUMAB
     Indication: Crohn^s disease
  2. FOLIC ACID [Concomitant]
     Active Substance: FOLIC ACID
     Dosage: 1 MILLIGRAM, QD
     Dates: start: 20230320, end: 20240809
  3. Paceta [Concomitant]
     Indication: Adverse event
     Dates: start: 20240627, end: 20240701
  4. SODIUM CHLORIDE [Concomitant]
     Active Substance: SODIUM CHLORIDE
     Indication: Adverse event
     Dosage: 100 MILLILITER, QD
     Dates: start: 20240627, end: 20240627
  5. SODIUM CHLORIDE [Concomitant]
     Active Substance: SODIUM CHLORIDE
     Dosage: 1000 MILLILITER, QD
     Dates: start: 20240628, end: 20240628
  6. SODIUM CHLORIDE [Concomitant]
     Active Substance: SODIUM CHLORIDE
     Dosage: 1000 MILLILITER, BID
     Dates: start: 20240629, end: 20240630
  7. SODIUM CHLORIDE [Concomitant]
     Active Substance: SODIUM CHLORIDE
     Dosage: 1000 MILLILITER, QD
     Dates: start: 20240701, end: 20240702
  8. Citopcin [Concomitant]
     Indication: Adverse event
     Dosage: 400 MILLIGRAM, BID
     Dates: start: 20240627, end: 20240701
  9. PANTOPRAZOLE SODIUM [Concomitant]
     Active Substance: PANTOPRAZOLE SODIUM
     Indication: Adverse event
     Dosage: 40 MILLIGRAM, QD
     Dates: start: 20240627, end: 20240627
  10. ACETYLCYSTEINE [Concomitant]
     Active Substance: ACETYLCYSTEINE
     Indication: Adverse event
     Dosage: 10 MILLILITER, TID
     Dates: start: 20240627, end: 20240627
  11. Salon [Concomitant]
     Indication: Adverse event
     Dosage: 30 MILLIGRAM, BID
     Dates: start: 20240628, end: 20240701
  12. Salon [Concomitant]
     Dosage: 20 MILLIGRAM, BID
     Dates: start: 20240701, end: 20240702
  13. Plasma Solution A [Concomitant]
     Indication: Adverse event
     Dosage: 1000 MILLILITER, QD
     Dates: start: 20240627, end: 20240627
  14. Plasma Solution A [Concomitant]
     Dosage: 1000 MILLILITER, BID
     Dates: start: 20240628, end: 20240628
  15. Laston [Concomitant]
     Indication: Adverse event
     Dosage: 15 MILLIGRAM, QD
     Dates: start: 20240628, end: 20240712
  16. METHYLPREDNISOLONE [Concomitant]
     Active Substance: METHYLPREDNISOLONE
     Indication: Adverse event
     Dosage: 16 MILLIGRAM, BID
     Dates: start: 20240702, end: 20240712
  17. VITAMINS [Concomitant]
     Active Substance: VITAMINS
     Indication: Adverse event
     Dosage: 5 MILLILITER, QD
     Dates: start: 20240702, end: 20240702
  18. PENTASA [Concomitant]
     Active Substance: MESALAMINE
     Dosage: 2000 MILLIGRAM, BID
     Dates: start: 20230320, end: 20240809
  19. AZATHIOPRINE [Concomitant]
     Active Substance: AZATHIOPRINE
     Dosage: 150 MILLIGRAM, QD
     Dates: start: 20230512, end: 20240809
  20. Solondo [Concomitant]
     Dosage: 20 MILLIGRAM, BID
     Dates: start: 20240322, end: 20240516

REACTIONS (1)
  - Small intestinal stenosis [Recovered/Resolved]

NARRATIVE: CASE EVENT DATE: 20240712
